FAERS Safety Report 7449578-4 (Version None)
Quarter: 2011Q2

REPORT INFORMATION
  Report Type: 
  Country: None (occurrence: None)
  Receive Date: 20110502
  Receipt Date: 20110426
  Transmission Date: 20111010
  Serious: Yes (Death, Congenital Anomaly, Other)
  Sender: FDA-Public Use
  Company Number: LT-BAYER-2011-012628

PATIENT
  Sex: Female

DRUGS (4)
  1. ASPIRIN [Suspect]
     Dosage: 100 MG, HS
     Route: 064
     Dates: start: 20090401, end: 20091201
  2. ENOXAPARIN SODIUM [Concomitant]
     Route: 064
  3. ENOXAPARIN SODIUM [Concomitant]
     Route: 064
  4. ASPIRIN [Suspect]
     Indication: DRUG EXPOSURE DURING PREGNANCY
     Dosage: 100 MG, HS
     Route: 064
     Dates: start: 20090401, end: 20091201

REACTIONS (1)
  - GASTROSCHISIS [None]
